FAERS Safety Report 5503806-0 (Version None)
Quarter: 2007Q4

REPORT INFORMATION
  Report Type: 
  Country: None (occurrence: None)
  Receive Date: 20071101
  Receipt Date: 20071024
  Transmission Date: 20080405
  Serious: Yes (Other)
  Sender: FDA-Public Use
  Company Number: PHBS2007JP17876

PATIENT
  Age: 2 Month
  Sex: Male

DRUGS (4)
  1. TEGRETOL [Suspect]
  2. VALPROATE SODIUM [Suspect]
     Route: 048
  3. CLONAZEPAM [Concomitant]
  4. PHENOBARBITAL TAB [Concomitant]

REACTIONS (2)
  - HYPERAMMONAEMIA [None]
  - METABOLIC ACIDOSIS [None]
